FAERS Safety Report 7500857-1 (Version None)
Quarter: 2011Q2

REPORT INFORMATION
  Report Type: 
  Country: None (occurrence: None)
  Receive Date: 20110524
  Receipt Date: 20110518
  Transmission Date: 20111010
  Serious: Yes (Other)
  Sender: FDA-Public Use
  Company Number: A0927822A

PATIENT
  Age: 26 Year
  Sex: Female

DRUGS (1)
  1. WELLBUTRIN SR [Suspect]
     Dosage: 150MG TWICE PER DAY
     Route: 048
     Dates: start: 20110418, end: 20110502

REACTIONS (9)
  - VIITH NERVE PARALYSIS [None]
  - ARTHRALGIA [None]
  - LIP SWELLING [None]
  - URTICARIA [None]
  - CHEST PAIN [None]
  - WHEELCHAIR USER [None]
  - EYE SWELLING [None]
  - IMMOBILE [None]
  - ABASIA [None]
